FAERS Safety Report 11735450 (Version 1)
Quarter: 2015Q4

REPORT INFORMATION
  Report Type: Spontaneous
  Country: US (occurrence: US)
  Receive Date: 20151110
  Receipt Date: 20151110
  Transmission Date: 20160304
  Serious: No
  Sender: FDA-Public Use
  Company Number: US-ELI_LILLY_AND_COMPANY-US201202000035

PATIENT
  Age: 56 Year
  Sex: Female

DRUGS (7)
  1. FORTEO [Suspect]
     Active Substance: TERIPARATIDE
     Dosage: 20 UG, QD
     Route: 065
     Dates: start: 20111103
  2. VITAMIN D [Concomitant]
     Active Substance: CHOLECALCIFEROL
  3. CALCIUM [Concomitant]
     Active Substance: CALCIUM
  4. SIMVASTATIN. [Concomitant]
     Active Substance: SIMVASTATIN
  5. FORTEO [Suspect]
     Active Substance: TERIPARATIDE
     Dosage: 20 UG, QD
     Route: 065
     Dates: start: 20111103
  6. FORTEO [Suspect]
     Active Substance: TERIPARATIDE
     Dosage: 20 UG, QD
     Route: 065
     Dates: start: 20111103
  7. FORTEO [Suspect]
     Active Substance: TERIPARATIDE
     Indication: OSTEOPOROSIS
     Dosage: 20 UG, QD
     Route: 065
     Dates: start: 2008, end: 2008

REACTIONS (13)
  - Limb injury [Unknown]
  - Pain in extremity [Recovered/Resolved]
  - Fall [Unknown]
  - Pain in extremity [Unknown]
  - Tremor [Unknown]
  - Wrist fracture [Not Recovered/Not Resolved]
  - Limb discomfort [Unknown]
  - Foot fracture [Unknown]
  - Drug dose omission [Recovered/Resolved]
  - Hypoaesthesia [Unknown]
  - Back pain [Unknown]
  - Contusion [Unknown]
  - Hypoaesthesia [Unknown]

NARRATIVE: CASE EVENT DATE: 20120316
